FAERS Safety Report 5685447-8 (Version None)
Quarter: 2008Q1

REPORT INFORMATION
  Report Type: 
  Country: None (occurrence: None)
  Receive Date: 20080328
  Receipt Date: 20080226
  Transmission Date: 20080703
  Serious: No
  Sender: FDA-Public Use
  Company Number: US-BAYER-200815535NA

PATIENT
  Age: 26 Year
  Sex: Female
  Weight: 104 kg

DRUGS (2)
  1. YAZ [Suspect]
     Indication: ORAL CONTRACEPTION
     Route: 048
     Dates: start: 20070201
  2. MINOCYCLIN [Concomitant]

REACTIONS (3)
  - HYPOMENORRHOEA [None]
  - MENORRHAGIA [None]
  - MENSTRUATION DELAYED [None]
